FAERS Safety Report 8433725-1 (Version None)
Quarter: 2012Q2

REPORT INFORMATION
  Report Type: 
  Country: None (occurrence: None)
  Receive Date: 20120613
  Receipt Date: 20120612
  Transmission Date: 20120825
  Serious: No
  Sender: FDA-Public Use
  Company Number: FR-ELI_LILLY_AND_COMPANY-FR201203006443

PATIENT
  Age: 27 Year
  Sex: Male

DRUGS (1)
  1. UMATROPE [Suspect]
     Indication: DWARFISM
     Dosage: 0.3 MG, UNKNOWN
     Route: 058
     Dates: start: 20050101

REACTIONS (1)
  - NO ADVERSE EVENT [None]
